FAERS Safety Report 9132251 (Version 1)
Quarter: 2013Q1

REPORT INFORMATION
  Report Type: Spontaneous
  Country: US (occurrence: US)
  Receive Date: 20130107
  Receipt Date: 20130107
  Transmission Date: 20140127
  Serious: No
  Sender: FDA-Public Use
  Company Number: US-BAYER-2012-134657

PATIENT
  Age: 39 Year
  Sex: Female
  Weight: 88.44 kg

DRUGS (12)
  1. BETASERON [Suspect]
     Dosage: 1 ML, QOD
     Route: 058
  2. BETASERON [Suspect]
     Dosage: 0.5 ML, QOD
  3. FLEXERIL [Concomitant]
  4. LISINOPRIL [Concomitant]
  5. IMITREX [Concomitant]
     Dosage: 4MG/0.5
  6. NEXIUM [Concomitant]
  7. MECLIZINE [Concomitant]
     Dosage: 1 ML, QOD
  8. MECLIZINE [Concomitant]
     Dosage: 0.5 ML, QOD
     Route: 058
  9. VITAMIN D [Concomitant]
     Dosage: 2000 UNIT
  10. MAGNESIUM [Concomitant]
  11. CYCLOBENZAPRINE [Concomitant]
  12. TIZANIDINE [Concomitant]

REACTIONS (5)
  - Visual impairment [Unknown]
  - White blood cell count decreased [Recovering/Resolving]
  - Liver function test abnormal [Unknown]
  - Insomnia [Unknown]
  - Muscle spasms [Unknown]
